FAERS Safety Report 14855910 (Version 2)
Quarter: 2018Q2

REPORT INFORMATION
  Report Type: Report from Study
  Country: DE (occurrence: DE)
  Receive Date: 20180507
  Receipt Date: 20180604
  Transmission Date: 20180711
  Serious: Yes (Hospitalization, Other)
  Sender: FDA-Public Use
  Company Number: PHHY2018DE052463

PATIENT
  Age: 66 Year
  Sex: Female
  Weight: 85 kg

DRUGS (4)
  1. ENTRESTO [Suspect]
     Active Substance: SACUBITRIL\VALSARTAN
     Dosage: 1 DF, BID (97MG/103MG)
     Route: 048
     Dates: start: 20180316
  2. ENTRESTO [Suspect]
     Active Substance: SACUBITRIL\VALSARTAN
     Indication: CARDIAC FAILURE
     Dosage: 1 DF (49MG SACUBITRIL/ 51MG VALSARTAN), BID
     Route: 048
     Dates: start: 20170309
  3. ENTRESTO [Suspect]
     Active Substance: SACUBITRIL\VALSARTAN
     Dosage: 1 DF, BID (49MG/51MG)
     Route: 048
     Dates: start: 20170402, end: 20180316
  4. ENTRESTO [Suspect]
     Active Substance: SACUBITRIL\VALSARTAN
     Dosage: UNK
     Route: 065
     Dates: start: 20180402

REACTIONS (5)
  - Atrial fibrillation [Recovered/Resolved]
  - Cardiac failure [Recovering/Resolving]
  - Fatigue [Recovered/Resolved]
  - Pulmonary congestion [Recovered/Resolved]
  - Atrial flutter [Not Recovered/Not Resolved]

NARRATIVE: CASE EVENT DATE: 20171101
